FAERS Safety Report 14026492 (Version 9)
Quarter: 2019Q1

REPORT INFORMATION
  Report Type: Spontaneous
  Country: US (occurrence: US)
  Receive Date: 20170929
  Receipt Date: 20190314
  Transmission Date: 20190417
  Serious: No
  Sender: FDA-Public Use
  Company Number: US-ACTELION-A-US2017-160243

PATIENT
  Sex: Female
  Weight: 56.24 kg

DRUGS (6)
  1. OPSUMIT [Suspect]
     Active Substance: MACITENTAN
     Indication: PULMONARY ARTERIAL HYPERTENSION
     Dosage: 10 MG, QD
     Route: 048
  2. ADCIRCA [Concomitant]
     Active Substance: TADALAFIL
  3. VELETRI [Suspect]
     Active Substance: EPOPROSTENOL
     Dosage: 60 NG/KG, PER MIN
     Route: 042
  4. REMODULIN [Suspect]
     Active Substance: TREPROSTINIL
     Indication: PRODUCT USED FOR UNKNOWN INDICATION
     Dosage: 60 NG/KG, PER MIN
     Route: 042
  5. VELETRI [Suspect]
     Active Substance: EPOPROSTENOL
     Indication: PULMONARY ARTERIAL HYPERTENSION
     Dosage: 57 NG/KG, PER MIN
     Route: 042
  6. AMLODIPINE [Concomitant]
     Active Substance: AMLODIPINE BESYLATE

REACTIONS (17)
  - Product administration error [Unknown]
  - Pulmonary pain [Unknown]
  - Bedridden [Recovering/Resolving]
  - Pulmonary arterial hypertension [Unknown]
  - Pain [Unknown]
  - Catheter site haemorrhage [Unknown]
  - Diarrhoea [Recovering/Resolving]
  - Chest pain [Unknown]
  - Condition aggravated [Unknown]
  - Catheter site pruritus [Unknown]
  - Head discomfort [Unknown]
  - Palpitations [Unknown]
  - Arthralgia [Unknown]
  - Dyspnoea exertional [Unknown]
  - Patient dissatisfaction with treatment [Unknown]
  - Feeling abnormal [Recovering/Resolving]
  - Headache [Unknown]
